FAERS Safety Report 14897980 (Version 2)
Quarter: 2018Q2

REPORT INFORMATION
  Report Type: Spontaneous
  Country: US (occurrence: US)
  Receive Date: 20180515
  Receipt Date: 20180517
  Transmission Date: 20180711
  Serious: No
  Sender: FDA-Public Use
  Company Number: US-SA-2017SA239630

PATIENT
  Sex: Male

DRUGS (2)
  1. TOUJEO [Suspect]
     Active Substance: INSULIN GLARGINE
     Indication: TYPE 2 DIABETES MELLITUS
     Dosage: DOSE:16 UNIT(S)
     Route: 051
     Dates: start: 2016, end: 20171125
  2. SOLOSTAR [Suspect]
     Active Substance: DEVICE
     Indication: TYPE 2 DIABETES MELLITUS
     Dates: start: 2016, end: 20171125

REACTIONS (26)
  - Anxiety [Unknown]
  - Vision blurred [Unknown]
  - Paraesthesia [Unknown]
  - Swelling [Unknown]
  - Drug prescribing error [Unknown]
  - Cold sweat [Unknown]
  - Headache [Unknown]
  - Dyspnoea [Unknown]
  - Condition aggravated [Unknown]
  - Drug dose omission [Unknown]
  - Pallor [Unknown]
  - Somnolence [Unknown]
  - Dysarthria [Unknown]
  - Depressed mood [Unknown]
  - Chest pain [Unknown]
  - Nausea [Unknown]
  - Feeling abnormal [Unknown]
  - Blood glucose decreased [Unknown]
  - Confusional state [Unknown]
  - Palpitations [Unknown]
  - Gait disturbance [Unknown]
  - Dizziness [Unknown]
  - Fatigue [Unknown]
  - Asthenia [Unknown]
  - Thinking abnormal [Unknown]
  - Decreased appetite [Unknown]
